FAERS Safety Report 5353402-3 (Version None)
Quarter: 2007Q2

REPORT INFORMATION
  Report Type: 
  Country: None (occurrence: None)
  Receive Date: 20070612
  Receipt Date: 20070531
  Transmission Date: 20071010
  Serious: Yes (Other)
  Sender: FDA-Public Use
  Company Number: PHBS2007NZ09140

PATIENT
  Age: 15 Year
  Sex: Male

DRUGS (4)
  1. CLOZARIL [Suspect]
     Dosage: UNK, UNK
     Route: 065
     Dates: start: 20070514
  2. CLOZARIL [Suspect]
     Dosage: 50 MG MANE, 225 MG NOCTE
     Route: 065
     Dates: start: 20070531
  3. OLANZAPINE [Concomitant]
     Route: 065
  4. OLANZAPINE [Concomitant]
     Dosage: 5 MG/D
     Route: 065
     Dates: start: 20070531

REACTIONS (4)
  - ELECTROCARDIOGRAM QT CORRECTED INTERVAL PROLONGED [None]
  - SALIVARY HYPERSECRETION [None]
  - SEDATION [None]
  - TACHYCARDIA [None]
